FAERS Safety Report 5351164-7 (Version None)
Quarter: 2007Q2

REPORT INFORMATION
  Report Type: 
  Country: None (occurrence: None)
  Receive Date: 20070608
  Receipt Date: 20070530
  Transmission Date: 20071010
  Serious: Yes (Other)
  Sender: FDA-Public Use
  Company Number: JP-PFIZER INC-2007039758

PATIENT
  Sex: Male
  Weight: 10 kg

DRUGS (3)
  1. GENOTROPIN [Suspect]
     Indication: PRADER-WILLI SYNDROME
     Route: 058
  2. GENOTROPIN [Suspect]
  3. GENOTROPIN [Suspect]

REACTIONS (2)
  - SCOLIOSIS [None]
  - SLEEP APNOEA SYNDROME [None]
